FAERS Safety Report 5426072-3 (Version None)
Quarter: 2007Q3

REPORT INFORMATION
  Report Type: 
  Country: None (occurrence: None)
  Receive Date: 20070827
  Receipt Date: 20070725
  Transmission Date: 20080115
  Serious: No
  Sender: FDA-Public Use
  Company Number: US-JNJFOC-20070706279

PATIENT
  Age: 29 Year
  Sex: Female

DRUGS (1)
  1. INVEGA [Suspect]
     Indication: BIPOLAR DISORDER
     Route: 048

REACTIONS (1)
  - DYSKINESIA [None]
